FAERS Safety Report 6280007-2 (Version None)
Quarter: 2009Q3

REPORT INFORMATION
  Report Type: 
  Country: None (occurrence: None)
  Receive Date: 20090723
  Receipt Date: 20090723
  Transmission Date: 20100115
  Serious: Yes (Other)
  Sender: FDA-Public Use
  Company Number: JP-B.I. PHARMACEUTICALS,INC./RIDGEFIELD-2009-BP-01867NB

PATIENT
  Age: 54 Year
  Sex: Male

DRUGS (8)
  1. MICARDIS [Suspect]
     Dosage: 80 MG
     Route: 048
     Dates: start: 20080401, end: 20081202
  2. ZYLORIC [Suspect]
     Dosage: 200 MG
     Route: 048
  3. FLUITRAN [Suspect]
     Dosage: 2 MG
     Route: 048
  4. TANKARU [Suspect]
     Dosage: 3500 MG
     Route: 048
  5. LASIX [Concomitant]
     Dosage: 80 MG
     Route: 048
  6. DIART [Concomitant]
     Dosage: 40 MG
     Route: 048
  7. ANPLAG [Concomitant]
     Dosage: 150 MG
     Route: 048
  8. ALLEGRA [Concomitant]
     Dosage: 60 MG
     Route: 048

REACTIONS (2)
  - ARTERIOSCLEROSIS [None]
  - HYPOGLYCAEMIA [None]
